FAERS Safety Report 20998117 (Version 10)
Quarter: 2025Q4

REPORT INFORMATION
  Report Type: Report from Study
  Country: US (occurrence: US)
  Receive Date: 20220623
  Receipt Date: 20251230
  Transmission Date: 20260118
  Serious: Yes (Other)
  Sender: PFIZER
  Company Number: US-PFIZER INC-2021222726

PATIENT
  Age: 73 Year
  Sex: Female

DRUGS (2)
  1. PREMARIN [Suspect]
     Active Substance: ESTROGENS, CONJUGATED
     Indication: Hormone replacement therapy
     Dosage: 0.5 G, 2X/WEEK (USE 0.5 GRAM EVERY MONDAY AND THURSDAY)
     Route: 067
  2. PREMARIN [Suspect]
     Active Substance: ESTROGENS, CONJUGATED
     Dosage: INSERT 0.625 VAGINALLY TWICE A WEEK/INSERT 1 APPLICATOR VAGINALLY
     Route: 067

REACTIONS (3)
  - Hip surgery [Unknown]
  - Illness [Recovering/Resolving]
  - Off label use [Unknown]
